FAERS Safety Report 8461174-9 (Version None)
Quarter: 2012Q2

REPORT INFORMATION
  Report Type: 
  Country: None (occurrence: None)
  Receive Date: 20120625
  Receipt Date: 20120618
  Transmission Date: 20120825
  Serious: No
  Sender: FDA-Public Use
  Company Number: US-PFIZER INC-2012147782

PATIENT
  Sex: Female

DRUGS (5)
  1. WELLBUTRIN XL [Concomitant]
     Dosage: 450 MG, 4X/DAY
  2. LEXAPRO [Concomitant]
     Dosage: 30 MG, 4X/DAY
  3. KLONOPIN [Concomitant]
     Dosage: 1 MG, 4X/DAY
  4. TEGRETOL [Concomitant]
     Dosage: 200 MG, UNK
  5. GEODON [Suspect]
     Indication: BIPOLAR DISORDER
     Dosage: 20MG IN DAY AND 40MG AT NIGHT
     Route: 048
     Dates: start: 20120301

REACTIONS (2)
  - ANXIETY [None]
  - DRUG INEFFECTIVE [None]
